FAERS Safety Report 19500175 (Version 1)
Quarter: 2021Q3

REPORT INFORMATION
  Report Type: Report from Study
  Country: None (occurrence: US)
  Receive Date: 20210707
  Receipt Date: 20210707
  Transmission Date: 20211014
  Serious: Yes (Other)
  Sender: FDA-Public Use
  Company Number: US-ULTRAGENYX PHARMACEUTICAL INC.-US-UGNX-21-00195

PATIENT
  Sex: Male

DRUGS (2)
  1. DOJOLVI [Suspect]
     Active Substance: TRIHEPTANOIN
     Dates: start: 20210219
  2. DOJOLVI [Suspect]
     Active Substance: TRIHEPTANOIN
     Indication: CARNITINE PALMITOYLTRANSFERASE DEFICIENCY
     Dates: start: 20200720

REACTIONS (4)
  - Nausea [Unknown]
  - Blood creatine phosphokinase increased [Recovered/Resolved]
  - Pain in extremity [Recovered/Resolved]
  - Rhabdomyolysis [Recovered/Resolved]
